FAERS Safety Report 7145036-5 (Version None)
Quarter: 2010Q4

REPORT INFORMATION
  Report Type: 
  Country: None (occurrence: None)
  Receive Date: 20101208
  Receipt Date: 20101124
  Transmission Date: 20110411
  Serious: Yes (Hospitalization)
  Sender: FDA-Public Use
  Company Number: FR-MYLANLABS-2010S1021879

PATIENT
  Age: 68 Year
  Sex: Female

DRUGS (2)
  1. TOPIRAMATE [Suspect]
     Route: 065
  2. PROPRANOLOL [Concomitant]
     Route: 065

REACTIONS (2)
  - ANGLE CLOSURE GLAUCOMA [None]
  - CHOROIDAL DETACHMENT [None]
